FAERS Safety Report 5077650-5 (Version None)
Quarter: 2006Q3

REPORT INFORMATION
  Report Type: 
  Country: None (occurrence: None)
  Receive Date: 20060810
  Receipt Date: 20060803
  Transmission Date: 20061208
  Serious: Yes (Hospitalization)
  Sender: FDA-Public Use
  Company Number: 2006CG01322

PATIENT
  Age: 77 Year
  Sex: Male

DRUGS (6)
  1. NEXIUM [Suspect]
     Route: 048
     Dates: start: 20060114, end: 20060121
  2. AMOXICILLIN [Suspect]
     Route: 048
     Dates: start: 20060114, end: 20060124
  3. NEXEN [Suspect]
     Route: 048
     Dates: start: 20060114, end: 20060121
  4. NEURONTIN [Concomitant]
     Route: 048
  5. CARDENSIEL [Concomitant]
     Route: 048
  6. DISCOTRINE [Concomitant]
     Route: 062

REACTIONS (3)
  - ERYTHEMA [None]
  - PRURITUS [None]
  - TOXIC SKIN ERUPTION [None]
